FAERS Safety Report 12422825 (Version 1)
Quarter: 2016Q2

REPORT INFORMATION
  Report Type: Not Available
  Country: CH (occurrence: CH)
  Receive Date: 20160601
  Receipt Date: 20160601
  Transmission Date: 20160815
  Serious: Yes (Other)
  Sender: FDA-Public Use
  Company Number: CH-NAPPMUNDI-DEU-2016-0018008

PATIENT
  Age: 46 Year
  Sex: Female
  Weight: 70 kg

DRUGS (23)
  1. OXYNORM TROPFEN [Suspect]
     Active Substance: OXYCODONE HYDROCHLORIDE
     Indication: NEURALGIA
     Dosage: 2 MG, PRN
     Route: 048
     Dates: start: 20160419
  2. MYFORTIC [Concomitant]
     Active Substance: MYCOPHENOLATE SODIUM
     Indication: PROPHYLAXIS AGAINST TRANSPLANT REJECTION
     Dosage: 360 MG, BID
     Route: 048
  3. NEURONTIN [Concomitant]
     Active Substance: GABAPENTIN
     Dosage: 100 MG, TID
     Route: 048
  4. TARGIN TABLETTEN RETARD [Suspect]
     Active Substance: NALOXONE HYDROCHLORIDE\OXYCODONE HYDROCHLORIDE
     Indication: NEURALGIA
     Dosage: 10/5 MG, BID
     Route: 048
     Dates: start: 20160419
  5. SPIRICORT [Concomitant]
     Active Substance: PREDNISOLONE
     Indication: PROPHYLAXIS AGAINST TRANSPLANT REJECTION
     Dosage: 5 MG, DAILY
  6. NOVALGIN [Concomitant]
     Active Substance: METAMIZOLE SODIUM
     Dosage: 500 MG, PRN
  7. BACTRIM [Concomitant]
     Active Substance: SULFAMETHOXAZOLE\TRIMETHOPRIM
     Indication: ANTIFUNGAL PROPHYLAXIS
     Dosage: 400/80 MG, DAILY
     Route: 048
  8. TOREM                              /01036501/ [Concomitant]
     Active Substance: TORSEMIDE
     Dosage: 30 MG, DAILY
  9. MARCOUMAR [Concomitant]
     Active Substance: PHENPROCOUMON
     Dosage: 3 MG, PRN
  10. PANTOPRAZOL SANDOZ [Concomitant]
     Indication: GASTROOESOPHAGEAL REFLUX DISEASE
     Dosage: 40 MG, DAILY
  11. EUTHYROX [Concomitant]
     Active Substance: LEVOTHYROXINE SODIUM
     Indication: HYPOTHYROIDISM
     Dosage: 75 MCG, DAILY
  12. VI-DE 3 [Concomitant]
     Active Substance: CHOLECALCIFEROL
     Indication: OSTEOPOROSIS PROPHYLAXIS
     Dosage: 20 GTT, DAILY
  13. PROGRAF [Concomitant]
     Active Substance: TACROLIMUS\TACROLIMUS ANHYDROUS
     Indication: PROPHYLAXIS AGAINST TRANSPLANT REJECTION
     Dosage: 2.5 MG, BID
     Route: 048
  14. BELOC                              /01739801/ [Concomitant]
     Indication: ATRIAL FIBRILLATION
     Dosage: 50 MG, BID
  15. METOLAZON [Concomitant]
     Active Substance: METOLAZONE
     Dosage: 5 MG, DAILY
  16. NEPHROTRANS [Concomitant]
     Indication: ACIDOSIS
     Dosage: 1 G, UNK
  17. PRIMPERAN [Concomitant]
     Active Substance: METOCLOPRAMIDE HYDROCHLORIDE
     Route: 048
  18. ZOVIRAX [Suspect]
     Active Substance: ACYCLOVIR
     Indication: HERPES ZOSTER
     Dosage: 800 MG, Q8H
     Route: 042
     Dates: start: 20160420, end: 20160422
  19. REMERON [Concomitant]
     Active Substance: MIRTAZAPINE
     Indication: DEPRESSION
     Dosage: 30 MG, DAILY
  20. LAXOBERON [Concomitant]
     Active Substance: SODIUM PICOSULFATE
     Indication: CONSTIPATION PROPHYLAXIS
     Dosage: 10 GTT, DAILY
     Route: 048
  21. DUROGESIC MATRIX [Suspect]
     Active Substance: FENTANYL
     Indication: NEURALGIA
     Dosage: 25 MCG, Q1H
     Route: 062
     Dates: start: 20160420, end: 20160421
  22. APROVEL [Concomitant]
     Active Substance: IRBESARTAN
     Indication: PROTEINURIA
     Dosage: 150 MG, DAILY
     Route: 048
  23. NALOXON [Concomitant]
     Indication: CONSTIPATION PROPHYLAXIS
     Dosage: UNK
     Route: 048

REACTIONS (8)
  - Confusional state [Recovered/Resolved]
  - Accidental overdose [Recovered/Resolved]
  - Vision blurred [None]
  - Somnolence [Recovering/Resolving]
  - Neurotoxicity [None]
  - Drug prescribing error [Recovered/Resolved]
  - Labelled drug-disease interaction medication error [Recovered/Resolved]
  - Aphasia [Recovering/Resolving]

NARRATIVE: CASE EVENT DATE: 20160420
